FAERS Safety Report 8914057 (Version 2)
Quarter: 2013Q1

REPORT INFORMATION
  Report Type: Spontaneous
  Country: US (occurrence: US)
  Receive Date: 20121119
  Receipt Date: 20130307
  Transmission Date: 20140127
  Serious: No
  Sender: FDA-Public Use
  Company Number: US-JNJFOC-20121102882

PATIENT
  Age: 34 None
  Sex: Male

DRUGS (5)
  1. INVEGA SUSTENNA [Suspect]
     Indication: PRODUCT USED FOR UNKNOWN INDICATION
     Route: 030
     Dates: start: 201202, end: 201209
  2. LITHIUM [Concomitant]
     Route: 065
  3. CLONAZEPAM [Concomitant]
     Indication: SLEEP DISORDER
     Route: 065
  4. VITAMIN D [Concomitant]
     Route: 065
  5. OMEGA 3 [Concomitant]
     Route: 065

REACTIONS (3)
  - Blood testosterone decreased [Not Recovered/Not Resolved]
  - Drug dose omission [Unknown]
  - Blood prolactin increased [Recovering/Resolving]
